APPROVED DRUG PRODUCT: HYPAQUE-M,90%
Active Ingredient: DIATRIZOATE MEGLUMINE; DIATRIZOATE SODIUM
Strength: 60%;30%
Dosage Form/Route: INJECTABLE;INJECTION
Application: N010220 | Product #002
Applicant: GE HEALTHCARE
Approved: Approved Prior to Jan 1, 1982 | RLD: No | RS: No | Type: DISCN